FAERS Safety Report 13306302 (Version 2)
Quarter: 2017Q1

REPORT INFORMATION
  Report Type: Report from Study
  Country: BE (occurrence: BE)
  Receive Date: 20170308
  Receipt Date: 20170330
  Transmission Date: 20170428
  Serious: Yes (Hospitalization)
  Sender: FDA-Public Use
  Company Number: BE-JNJFOC-20170303626

PATIENT
  Age: 75 Year
  Sex: Male
  Weight: 55 kg

DRUGS (16)
  1. BURINEX [Concomitant]
     Active Substance: BUMETANIDE
     Dosage: AT 8AM
     Route: 048
  2. SYSCOR [Concomitant]
     Dosage: AT 8 AM
     Route: 048
  3. TRADONAL [Concomitant]
     Active Substance: TRAMADOL HYDROCHLORIDE
     Dosage: 100 MG/ML 30 ML; IF IN PAIN (MAX. NUMBER: 1 PER DAY) DOSE PER INTAKE: 15 DROPS
     Route: 048
  4. LORAZEPAM. [Concomitant]
     Active Substance: LORAZEPAM
     Dosage: AT 10 PM
     Route: 048
  5. XANAX [Concomitant]
     Active Substance: ALPRAZOLAM
     Dosage: 1 TABLET IF NEEDED AT 8 AM
     Route: 048
  6. CORUNO [Concomitant]
     Active Substance: MOLSIDOMINE
     Dosage: AT 8 AM
     Route: 048
  7. PROGOR [Concomitant]
     Active Substance: DILTIAZEM HYDROCHLORIDE
     Dosage: AT 8 AM
     Route: 048
  8. PROMAGNOR [Concomitant]
     Dosage: AT 8 AM
     Route: 048
  9. TRAZODONE [Concomitant]
     Active Substance: TRAZODONE HYDROCHLORIDE
     Dosage: AT 10 PM
     Route: 048
  10. DAFALGAN [Concomitant]
     Active Substance: ACETAMINOPHEN
     Dosage: IF IN PAIN (MAX. NUMBER: 4 PER DAY); DOSE PER INTAKE: 1 TABLET
     Route: 048
  11. OMEPRAZOL APOTEX [Concomitant]
     Dosage: AT 8 AM
     Route: 048
  12. DOMPERIDONE EG [Concomitant]
     Dosage: DOSE PER ADMINISTRATION: 1 TABLET IF NEEDED
     Route: 048
  13. ATORVASTATINE TEVA [Concomitant]
     Active Substance: ATORVASTATIN
     Dosage: 20 MG, 1 PIECE AT 8 AM
     Route: 048
  14. AZITHROMYCINE EG [Concomitant]
     Active Substance: AZITHROMYCIN DIHYDRATE
     Dosage: AT 8 AM
     Route: 048
  15. CICALFATE [Concomitant]
     Dosage: ONE PIECE AT 8 AM AND ONE PIECE AT 8 PM. APPLY AT THE SKIN LESIONS
     Route: 061
  16. IBRUTINIB [Suspect]
     Active Substance: IBRUTINIB
     Indication: MANTLE CELL LYMPHOMA
     Route: 048
     Dates: start: 20160616, end: 20170107

REACTIONS (2)
  - Blister [Recovered/Resolved]
  - Pancytopenia [Recovered/Resolved]

NARRATIVE: CASE EVENT DATE: 201701
